FAERS Safety Report 25817064 (Version 1)
Quarter: 2025Q3

REPORT INFORMATION
  Report Type: Spontaneous
  Country: TW (occurrence: TW)
  Receive Date: 20250918
  Receipt Date: 20250918
  Transmission Date: 20251021
  Serious: Yes (Other)
  Sender: MERCK SHARP & DOHME LLC
  Company Number: TW-TFDA-TDS-1140009801

PATIENT
  Age: 52 Year
  Sex: Male
  Weight: 80.6 kg

DRUGS (8)
  1. DIFICID [Suspect]
     Active Substance: FIDAXOMICIN
     Indication: Clostridium difficile infection
     Dosage: WITHDRAWN
     Route: 048
     Dates: start: 20250512, end: 20250522
  2. BROMAZEPAM [Concomitant]
     Active Substance: BROMAZEPAM
     Indication: Anxiety
     Route: 048
     Dates: start: 20250505, end: 20250527
  3. BROTIZOLAM [Concomitant]
     Active Substance: BROTIZOLAM
     Indication: Insomnia
     Route: 048
     Dates: start: 20250505, end: 20250527
  4. EURODIN [Concomitant]
     Indication: Insomnia
     Route: 048
     Dates: start: 20250505, end: 20250527
  5. OLMESARTAN MEDOXOMIL [Concomitant]
     Active Substance: OLMESARTAN MEDOXOMIL
     Indication: Hypertension
     Route: 048
     Dates: start: 20250522, end: 20250527
  6. NIFEDIPINE [Concomitant]
     Active Substance: NIFEDIPINE
     Indication: Hypertension
     Route: 048
     Dates: start: 20250505, end: 20250527
  7. DILATREN [Concomitant]
     Indication: Hypertension
     Route: 048
     Dates: start: 20250505, end: 20250527
  8. FENOFIBRATE [Concomitant]
     Active Substance: FENOFIBRATE
     Indication: Dyslipidaemia
     Route: 048
     Dates: start: 20250505, end: 20250527

REACTIONS (1)
  - Hepatitis [Recovering/Resolving]

NARRATIVE: CASE EVENT DATE: 20250527
